FAERS Safety Report 24542541 (Version 2)
Quarter: 2024Q4

REPORT INFORMATION
  Report Type: Spontaneous
  Country: RO (occurrence: RO)
  Receive Date: 20241024
  Receipt Date: 20241105
  Transmission Date: 20250115
  Serious: Yes (Hospitalization, Other)
  Sender: ALKEM
  Company Number: None

PATIENT
  Age: 1 Year
  Sex: Female
  Weight: 6 kg

DRUGS (10)
  1. TACROLIMUS [Suspect]
     Active Substance: TACROLIMUS
     Indication: Immunosuppressant drug therapy
     Dosage: UNK
     Route: 065
  2. TACROLIMUS [Suspect]
     Active Substance: TACROLIMUS
     Dosage: UNK, DOSE REDUCED
     Route: 065
  3. METHYLPREDNISOLONE [Suspect]
     Active Substance: METHYLPREDNISOLONE
     Indication: Immunosuppressant drug therapy
     Dosage: UNK
     Route: 065
  4. ALBUMIN HUMAN [Concomitant]
     Active Substance: ALBUMIN HUMAN
     Indication: Product used for unknown indication
     Dosage: UNK
     Route: 042
  5. FUROSEMIDE [Concomitant]
     Active Substance: FUROSEMIDE
     Indication: Product used for unknown indication
     Dosage: UNK
     Route: 065
  6. DEXTROSE [Concomitant]
     Active Substance: DEXTROSE MONOHYDRATE
     Indication: Product used for unknown indication
     Dosage: 12 MILLIGRAM/KILOGRAM, EVERY 1 MINUTE
     Route: 065
  7. DEXTROSE [Concomitant]
     Active Substance: DEXTROSE MONOHYDRATE
     Dosage: 10 MILLIGRAM/KILOGRAM, EVERY 1 MINUTE
     Route: 065
  8. PROTHROMBIN COMPLEX CONCENTRATE [Concomitant]
     Active Substance: COAGULATION FACTOR IX HUMAN\COAGULATION FACTOR VII HUMAN\COAGULATION FACTOR X HUMAN\PROTEIN C\PROTEI
     Indication: Product used for unknown indication
     Dosage: UNK
     Route: 065
  9. COAGULATION FACTOR VIIA RECOMBINANT HUMAN [Concomitant]
     Active Substance: COAGULATION FACTOR VIIA RECOMBINANT HUMAN
     Indication: Product used for unknown indication
     Dosage: UNK
     Route: 065
  10. SPIRONOLACTONE [Concomitant]
     Active Substance: SPIRONOLACTONE
     Indication: Product used for unknown indication
     Dosage: UNK
     Route: 065

REACTIONS (7)
  - Renal tubular acidosis [Recovering/Resolving]
  - Immunosuppressant drug level increased [Recovering/Resolving]
  - Post transplant lymphoproliferative disorder [Unknown]
  - Gastroenteritis rotavirus [Unknown]
  - Gastroenteritis bacterial [Unknown]
  - Epstein-Barr virus infection [Unknown]
  - Cytomegalovirus infection [Unknown]
